FAERS Safety Report 8657891 (Version 4)
Quarter: 2013Q4

REPORT INFORMATION
  Report Type: Spontaneous
  Country: US (occurrence: US)
  Receive Date: 20120710
  Receipt Date: 20131016
  Transmission Date: 20140711
  Serious: Yes (Hospitalization)
  Sender: FDA-Public Use
  Company Number: US-PFIZER INC-2012161330

PATIENT
  Age: 76 Year
  Sex: Female

DRUGS (1)
  1. XALKORI [Suspect]
     Indication: LUNG NEOPLASM MALIGNANT
     Dosage: 250 MG, 2X/DAY
     Route: 048
     Dates: start: 20120322

REACTIONS (6)
  - Malaise [Unknown]
  - Dyspepsia [Unknown]
  - Fluid retention [Unknown]
  - Local swelling [Unknown]
  - Fatigue [Unknown]
  - Nausea [Unknown]
